FAERS Safety Report 12565961 (Version 1)
Quarter: 2016Q3

REPORT INFORMATION
  Report Type: Spontaneous
  Country: US (occurrence: US)
  Receive Date: 20160718
  Receipt Date: 20160718
  Transmission Date: 20161109
  Serious: Yes (Hospitalization)
  Sender: FDA-Public Use
  Company Number: US-BIOGEN-2016BI00265372

PATIENT
  Sex: Female

DRUGS (1)
  1. AVONEX [Suspect]
     Active Substance: INTERFERON BETA-1A
     Indication: MULTIPLE SCLEROSIS
     Route: 065
     Dates: start: 20030210, end: 201606

REACTIONS (4)
  - Multiple sclerosis relapse [Not Recovered/Not Resolved]
  - Confusional state [Not Recovered/Not Resolved]
  - Pulmonary haemorrhage [Recovered/Resolved]
  - Musculoskeletal disorder [Not Recovered/Not Resolved]
